FAERS Safety Report 13752733 (Version 1)
Quarter: 2017Q3

REPORT INFORMATION
  Report Type: Spontaneous
  Country: US (occurrence: US)
  Receive Date: 20170713
  Receipt Date: 20170713
  Transmission Date: 20171127
  Serious: Yes (Hospitalization)
  Sender: FDA-Public Use
  Company Number: None

PATIENT
  Age: 81 Year
  Sex: Male
  Weight: 104 kg

DRUGS (10)
  1. ALLOPURINOL. [Concomitant]
     Active Substance: ALLOPURINOL
  2. RUXOLITINIB [Suspect]
     Active Substance: RUXOLITINIB
     Indication: LEUKAEMIA
     Dosage: ?          OTHER DOSE:MG;?
     Route: 048
     Dates: start: 20170606
  3. FUROSEMIDE. [Concomitant]
     Active Substance: FUROSEMIDE
  4. GLIMEPIRIDE. [Concomitant]
     Active Substance: GLIMEPIRIDE
  5. METOPROLOL TARTRATE. [Concomitant]
     Active Substance: METOPROLOL TARTRATE
  6. CALCITRIOL. [Concomitant]
     Active Substance: CALCITRIOL
  7. ASPIRIN. [Concomitant]
     Active Substance: ASPIRIN
  8. PIOGLITAZONE. [Concomitant]
     Active Substance: PIOGLITAZONE
  9. SIMVASTATIN. [Concomitant]
     Active Substance: SIMVASTATIN
  10. ZETIA [Concomitant]
     Active Substance: EZETIMIBE

REACTIONS (7)
  - Pyrexia [None]
  - Pneumonia [None]
  - Pulmonary mass [None]
  - Dyspnoea [None]
  - Lung consolidation [None]
  - Infection [None]
  - Cough [None]

NARRATIVE: CASE EVENT DATE: 20170703
